FAERS Safety Report 17304885 (Version 8)
Quarter: 2021Q4

REPORT INFORMATION
  Report Type: Spontaneous
  Country: US (occurrence: US)
  Receive Date: 20200123
  Receipt Date: 20211104
  Transmission Date: 20220303
  Serious: No
  Sender: FDA-Public Use
  Company Number: US-PFIZER INC-2018264439

PATIENT
  Age: 54 Year
  Sex: Female
  Weight: 44.45 kg

DRUGS (2)
  1. LYRICA [Suspect]
     Active Substance: PREGABALIN
     Indication: Lumbar radiculopathy
     Dosage: 100 MG, 4X/DAY
     Route: 048
  2. LYRICA [Suspect]
     Active Substance: PREGABALIN
     Indication: Fibromyalgia

REACTIONS (2)
  - Hypoacusis [Not Recovered/Not Resolved]
  - Anxiety [Unknown]
